FAERS Safety Report 6688227-X (Version None)
Quarter: 2010Q2

REPORT INFORMATION
  Report Type: 
  Country: None (occurrence: None)
  Receive Date: 20100420
  Receipt Date: 20100412
  Transmission Date: 20101027
  Serious: Yes (Hospitalization)
  Sender: FDA-Public Use
  Company Number: JP-ASTRAZENECA-2010SE15080

PATIENT
  Age: 95 Year
  Sex: Female

DRUGS (5)
  1. PARAPRES PLUS [Suspect]
     Indication: HYPERTENSION
     Dosage: 16/12.5 MG; 1 DF DAILY
     Route: 048
     Dates: start: 20090101, end: 20091115
  2. FUROSEMIDE [Suspect]
     Indication: HYPERTENSION
     Route: 048
     Dates: start: 20090101
  3. AMARYL [Concomitant]
     Indication: TYPE 2 DIABETES MELLITUS
     Route: 048
     Dates: start: 20090101
  4. ASPIRIN [Concomitant]
     Indication: ANTICOAGULANT THERAPY
     Route: 048
     Dates: start: 20090101
  5. NATECAL D [Concomitant]
     Indication: OSTEOPOROSIS
     Route: 048
     Dates: start: 20090101

REACTIONS (1)
  - RENAL FAILURE ACUTE [None]
